FAERS Safety Report 7651174-0 (Version None)
Quarter: 2011Q3

REPORT INFORMATION
  Report Type: 
  Country: None (occurrence: None)
  Receive Date: 20110802
  Receipt Date: 20101215
  Transmission Date: 20111222
  Serious: Yes (Other)
  Sender: FDA-Public Use
  Company Number: US-BAYER-2010-005890

PATIENT
  Age: 71 Year
  Sex: Male

DRUGS (1)
  1. REFLUDAN [Suspect]

REACTIONS (1)
  - RENAL DISORDER [None]
